FAERS Safety Report 6992462-0 (Version None)
Quarter: 2010Q3

REPORT INFORMATION
  Report Type: 
  Country: None (occurrence: None)
  Receive Date: 20100917
  Receipt Date: 20100913
  Transmission Date: 20110219
  Serious: Yes (Life-Threatening, Hospitalization)
  Sender: FDA-Public Use
  Company Number: PHHY2010DE61399

PATIENT
  Age: 91 Year
  Sex: Male
  Weight: 75 kg

DRUGS (4)
  1. LEPONEX [Suspect]
     Indication: SCHIZOPHRENIA
     Dosage: 500 MG, UNK
     Dates: end: 20100821
  2. PROMETHAZINE [Suspect]
     Indication: SCHIZOPHRENIA
     Dosage: UNK
     Dates: end: 20100821
  3. CITALOPRAM HYDROBROMIDE [Concomitant]
     Indication: SCHIZOPHRENIA
     Dosage: 60 MG, UNK
     Dates: end: 20100821
  4. AMISULPRIDE [Concomitant]
     Indication: SCHIZOPHRENIA
     Dosage: UNK
     Dates: end: 20100821

REACTIONS (5)
  - BLOOD CREATINE PHOSPHOKINASE INCREASED [None]
  - BLOOD CREATINE PHOSPHOKINASE MB INCREASED [None]
  - C-REACTIVE PROTEIN INCREASED [None]
  - NEUROLEPTIC MALIGNANT SYNDROME [None]
  - RENAL FAILURE ACUTE [None]
